FAERS Safety Report 8053192-X (Version None)
Quarter: 2012Q1

REPORT INFORMATION
  Report Type: 
  Country: None (occurrence: None)
  Receive Date: 20120118
  Receipt Date: 20120113
  Transmission Date: 20120608
  Serious: Yes (Hospitalization, Other)
  Sender: FDA-Public Use
  Company Number: US-BAYER-2012-004393

PATIENT
  Sex: Female

DRUGS (2)
  1. MIRENA [Suspect]
     Indication: CONTRACEPTION
     Dosage: 20 MCG/24HR, CONT
     Route: 015
     Dates: start: 20090801, end: 20100101
  2. ORAL CONTRACEPTIVE NOS [Concomitant]

REACTIONS (4)
  - PROCEDURAL PAIN [None]
  - DEVICE DISLOCATION [None]
  - SCAR [None]
  - PELVIC PAIN [None]
